FAERS Safety Report 8829824 (Version 1)
Quarter: 2012Q4

REPORT INFORMATION
  Report Type: 
  Country: IN (occurrence: IN)
  Receive Date: 20121008
  Receipt Date: 20121008
  Transmission Date: 20130627
  Serious: Yes (Hospitalization)
  Sender: FDA-Public Use
  Company Number: IN-ROCHE-1142485

PATIENT
  Sex: Male

DRUGS (3)
  1. LUCENTIS [Suspect]
     Indication: RETINAL HAEMORRHAGE
     Route: 050
  2. LUCENTIS [Suspect]
     Route: 050
     Dates: start: 201108
  3. LUCENTIS [Suspect]
     Route: 050
     Dates: start: 201109

REACTIONS (1)
  - Retinal tear [Unknown]
